FAERS Safety Report 12006186 (Version 1)
Quarter: 2016Q1

REPORT INFORMATION
  Report Type: Spontaneous
  Country: US (occurrence: US)
  Receive Date: 20160205
  Receipt Date: 20160205
  Transmission Date: 20160526
  Serious: No
  Sender: FDA-Public Use
  Company Number: US-009507513-1602USA002894

PATIENT
  Age: 16 Year
  Sex: Male

DRUGS (4)
  1. DECADRON [Suspect]
     Active Substance: DEXAMETHASONE
     Dosage: TWO WEEKS LATER, HE RECEIVED A SECOND TRANSTYMPANIC MEMBRANE
  2. DECADRON [Suspect]
     Active Substance: DEXAMETHASONE
     Dosage: TRANSTYMPANIC MEMBRANE
  3. INFLIXIMAB [Concomitant]
     Active Substance: INFLIXIMAB
     Dosage: TWO WEEKS LATER 2 ADDITIONAL INFUSION WERE GIVEN 3 AND 5 WEEKS AFTER THE INITIAL INFUSION
  4. INFLIXIMAB [Concomitant]
     Active Substance: INFLIXIMAB
     Indication: HEARING AID THERAPY
     Dosage: 900 MG, UNK

REACTIONS (1)
  - Drug ineffective [Unknown]
